FAERS Safety Report 23961418 (Version 1)
Quarter: 2024Q2

REPORT INFORMATION
  Report Type: Spontaneous
  Country: US (occurrence: US)
  Receive Date: 20240611
  Receipt Date: 20240611
  Transmission Date: 20240716
  Serious: No
  Sender: FDA-Public Use
  Company Number: US-Calliditas-2024CAL00909

PATIENT
  Age: 46 Year
  Sex: Male
  Weight: 65.3 kg

DRUGS (1)
  1. TARPEYO [Suspect]
     Active Substance: BUDESONIDE
     Indication: IgA nephropathy
     Route: 048
     Dates: start: 20240316

REACTIONS (4)
  - Blood pressure increased [Unknown]
  - Weight increased [Unknown]
  - Increased appetite [Unknown]
  - Hunger [Unknown]
